FAERS Safety Report 6822190-3 (Version None)
Quarter: 2010Q3

REPORT INFORMATION
  Report Type: 
  Country: None (occurrence: None)
  Receive Date: 20100702
  Receipt Date: 20100623
  Transmission Date: 20110219
  Serious: Yes (Hospitalization)
  Sender: FDA-Public Use
  Company Number: 2010EU002319

PATIENT
  Age: 52 Year
  Sex: Female
  Weight: 82 kg

DRUGS (1)
  1. SOLIFENACIN SUCCINATE (VESICARE) [Suspect]
     Indication: HYPERTONIC BLADDER
     Dosage: 10 MG, /D; 5 MG, /D; 5 MG, /D
     Dates: start: 20100112

REACTIONS (1)
  - CYSTOPEXY [None]
